FAERS Safety Report 17075232 (Version 2)
Quarter: 2020Q1

REPORT INFORMATION
  Report Type: Spontaneous
  Country: JP (occurrence: JP)
  Receive Date: 20191126
  Receipt Date: 20200128
  Transmission Date: 20200409
  Serious: Yes (Death, Hospitalization)
  Sender: FDA-Public Use
  Company Number: JP-JNJFOC-20190924874

PATIENT
  Age: 9 Decade
  Sex: Male

DRUGS (2)
  1. DUROTEP [Suspect]
     Active Substance: FENTANYL
     Indication: CANCER PAIN
     Route: 062
  2. DUROTEP [Suspect]
     Active Substance: FENTANYL
     Route: 062

REACTIONS (2)
  - Neoplasm malignant [Fatal]
  - Inadequate analgesia [Recovered/Resolved]
